FAERS Safety Report 11209125 (Version 1)
Quarter: 2015Q2

REPORT INFORMATION
  Report Type: Spontaneous
  Country: ES (occurrence: ES)
  Receive Date: 20150622
  Receipt Date: 20150622
  Transmission Date: 20150821
  Serious: Yes (Death, Hospitalization, Other)
  Sender: FDA-Public Use
  Company Number: PHHY2015ES073476

PATIENT
  Age: 82 Year
  Sex: Male

DRUGS (1)
  1. METHOTREXATE [Suspect]
     Active Substance: METHOTREXATE
     Indication: PSORIASIS
     Dosage: 7.5 MG, QW
     Route: 048

REACTIONS (11)
  - Pancytopenia [Unknown]
  - Malaise [Unknown]
  - Toxicity to various agents [Unknown]
  - Mouth ulceration [Unknown]
  - Pain [Unknown]
  - Multi-organ failure [Fatal]
  - Parakeratosis [Unknown]
  - Erythema [Unknown]
  - Necrosis [Unknown]
  - Aplasia [Unknown]
  - Dysphagia [Unknown]
